FAERS Safety Report 9660177 (Version 1)
Quarter: 2013Q4

REPORT INFORMATION
  Report Type: Spontaneous
  Country: FR (occurrence: FR)
  Receive Date: 20131031
  Receipt Date: 20131031
  Transmission Date: 20140711
  Serious: Yes (Death, Life-Threatening, Hospitalization)
  Sender: FDA-Public Use
  Company Number: FR-ASTRAZENECA-2013SE79791

PATIENT
  Age: 51 Year
  Sex: Male

DRUGS (23)
  1. INEXIUM [Suspect]
     Route: 048
     Dates: start: 20130910, end: 20130919
  2. TAZOCILLINE [Suspect]
     Indication: PYREXIA
     Route: 065
     Dates: start: 20130906, end: 20130913
  3. TIENAM [Suspect]
     Indication: PYREXIA
     Route: 065
     Dates: start: 20130916, end: 20130919
  4. AXEPIM [Concomitant]
     Indication: PYREXIA
     Dates: start: 20130913, end: 20130916
  5. AZACTAM [Concomitant]
     Indication: PYREXIA
     Dates: start: 20130918
  6. FLAGYL [Concomitant]
     Indication: PYREXIA
     Dates: start: 20130918
  7. VANCOMYCINE [Concomitant]
     Indication: PYREXIA
     Dates: start: 20130907, end: 20130916
  8. ZYVOXID [Concomitant]
     Indication: PYREXIA
     Dates: start: 20130916
  9. ZOVIRAX [Concomitant]
     Dates: start: 20130902
  10. CICLOSPORINE [Concomitant]
     Dates: start: 20130905, end: 20130915
  11. SOLUMEDROL [Concomitant]
     Dates: start: 20130915
  12. AMBISOME [Concomitant]
     Dates: start: 20130911, end: 20130914
  13. NON FRACTIONED HEPARINOTHERAPY [Concomitant]
     Dates: start: 20130831
  14. BACTRIM [Concomitant]
     Dosage: LONG LASTING TREATMENT
  15. SPECIAFOLDINE [Concomitant]
     Dosage: LONG LASTING TREATMENT
  16. MOTILIUM [Concomitant]
     Dosage: LONG LASTING TREATMENT
  17. NEURONTIN [Concomitant]
     Dosage: LONG LASTING TREATMENT
  18. TOPALGIC [Concomitant]
     Dosage: LONG LASTING TREATMENT
  19. LOXEN [Concomitant]
     Dosage: LONG LASTING TREATMENT
  20. EFFEXOR [Concomitant]
     Dosage: LONG LASTING TREATMENT
  21. STILNOX [Concomitant]
     Dosage: LONG LASTING TREATMENT
  22. MYCAMINIE [Concomitant]
     Dates: end: 20130903
  23. VFEND [Concomitant]
     Indication: PYREXIA
     Dates: start: 20130916

REACTIONS (5)
  - Cerebral circulatory failure [Fatal]
  - Renal failure [Fatal]
  - Brain oedema [Unknown]
  - Status epilepticus [Unknown]
  - Toxic skin eruption [Not Recovered/Not Resolved]
